FAERS Safety Report 5926798-9 (Version None)
Quarter: 2008Q4

REPORT INFORMATION
  Report Type: 
  Country: None (occurrence: None)
  Receive Date: 20081022
  Receipt Date: 20080930
  Transmission Date: 20090506
  Serious: Yes (Other)
  Sender: FDA-Public Use
  Company Number: US-BAYER-200827997GPV

PATIENT

DRUGS (6)
  1. ALEMTUZUMAB [Suspect]
     Indication: RENAL TRANSPLANT
     Route: 042
  2. RITUXIMAB [Suspect]
     Indication: RENAL TRANSPLANT
     Route: 042
  3. IMMUNE GLOBULIN INTRAVENOUS (HUMAN) [Concomitant]
     Indication: RENAL TRANSPLANT
     Route: 042
  4. TACROLIMUS [Concomitant]
     Indication: RENAL TRANSPLANT
  5. MYCOPHENOLATE MOFETIL [Concomitant]
     Indication: RENAL TRANSPLANT
  6. STEROIDS [Concomitant]
     Indication: RENAL TRANSPLANT

REACTIONS (1)
  - POLYOMAVIRUS-ASSOCIATED NEPHROPATHY [None]
